FAERS Safety Report 23829531 (Version 2)
Quarter: 2024Q2

REPORT INFORMATION
  Report Type: Spontaneous
  Country: US (occurrence: None)
  Receive Date: 20240508
  Receipt Date: 20240514
  Transmission Date: 20240716
  Serious: Yes (Other)
  Sender: FDA-Public Use
  Company Number: 2024A104490

PATIENT
  Age: 711 Month
  Sex: Female

DRUGS (2)
  1. SYMBICORT [Suspect]
     Active Substance: BUDESONIDE\FORMOTEROL FUMARATE DIHYDRATE
  2. SYMBICORT [Suspect]
     Active Substance: BUDESONIDE\FORMOTEROL FUMARATE DIHYDRATE
     Dosage: BUDESONIDE AND FORMOTEROL AEROSOL, 160\4.5 MCG OF UNKNOWN FREQUENCY UNKNOWN
     Dates: start: 202403

REACTIONS (4)
  - Diverticulitis [Unknown]
  - Illness [Unknown]
  - Insurance issue [Unknown]
  - Product packaging quantity issue [Unknown]

NARRATIVE: CASE EVENT DATE: 20240401
